FAERS Safety Report 16854771 (Version 5)
Quarter: 2020Q3

REPORT INFORMATION
  Report Type: Report from Study
  Country: JP (occurrence: JP)
  Receive Date: 20190926
  Receipt Date: 20200720
  Transmission Date: 20201102
  Serious: Yes (Hospitalization, Disabling, Other)
  Sender: FDA-Public Use
  Company Number: JP-ASTELLAS-2019JP018207

PATIENT
  Age: 83 Year
  Sex: Female
  Weight: 54 kg

DRUGS (4)
  1. IRBESARTAN. [Concomitant]
     Active Substance: IRBESARTAN
     Indication: HYPERTENSION
     Route: 048
  2. ASP2215 [Suspect]
     Active Substance: GILTERITINIB
     Indication: ACUTE MYELOID LEUKAEMIA RECURRENT
     Route: 048
     Dates: start: 20190820, end: 20190827
  3. ASP2215 [Suspect]
     Active Substance: GILTERITINIB
     Route: 048
     Dates: start: 20190828, end: 20190927
  4. VIDAZA [Concomitant]
     Active Substance: AZACITIDINE
     Indication: ACUTE MYELOID LEUKAEMIA
     Dosage: UNK UNK, UNKNOWN FREQ.
     Route: 065

REACTIONS (14)
  - Malaise [Recovered/Resolved]
  - Blood alkaline phosphatase increased [Recovered/Resolved]
  - Myalgia [Recovering/Resolving]
  - Febrile neutropenia [Recovering/Resolving]
  - Fatigue [Recovered/Resolved]
  - Pyrexia [Recovered/Resolved]
  - Acute myeloid leukaemia [Unknown]
  - Myelosuppression [Not Recovered/Not Resolved]
  - Nausea [Recovering/Resolving]
  - Arthralgia [Recovering/Resolving]
  - Infection [Recovered/Resolved]
  - Febrile neutropenia [Recovering/Resolving]
  - Renal impairment [Recovering/Resolving]
  - Muscle spasms [Recovered/Resolved]

NARRATIVE: CASE EVENT DATE: 20190822
